FAERS Safety Report 7472358-0 (Version None)
Quarter: 2011Q2

REPORT INFORMATION
  Report Type: 
  Country: None (occurrence: None)
  Receive Date: 20110511
  Receipt Date: 20110427
  Transmission Date: 20111010
  Serious: Yes (Hospitalization)
  Sender: FDA-Public Use
  Company Number: PHHY2011CA23713

PATIENT
  Sex: Male

DRUGS (1)
  1. CLOZARIL [Suspect]
     Indication: SCHIZOPHRENIA
     Dates: start: 20020923

REACTIONS (5)
  - AGITATION [None]
  - NORMAL PRESSURE HYDROCEPHALUS [None]
  - CATATONIA [None]
  - AGGRESSION [None]
  - WEIGHT DECREASED [None]
